FAERS Safety Report 9034681 (Version 1)
Quarter: 2013Q1

REPORT INFORMATION
  Report Type: Spontaneous
  Country: GB (occurrence: None)
  Receive Date: 20130118
  Receipt Date: 20130118
  Transmission Date: 20140127
  Serious: Yes (Life-Threatening, Hospitalization, Other)
  Sender: FDA-Public Use
  Company Number: ABR_00790_2013

PATIENT
  Age: 62 Year
  Sex: Male

DRUGS (15)
  1. ERYTHROMYCIN (ERYTHROMYCIN) [Suspect]
     Indication: PRODUCT USED FOR UNKNOWN INDICATION
     Dosage: [CUMULATIVE DOSE TO 1ST RXN: 20234.375 MG] INTRAVENOUS (NOT OTHERWISE SPECIFIED))??
     Route: 042
     Dates: start: 20110314, end: 20110317
  2. CLARITHROMYCIN (CLARITHROMYCIN) [Suspect]
     Dosage: BID, [ONE DOSE GIVEN; CUMULATIVE DOSE TO FIRST RXN: 57958.33 MG] INTRAVENOUS (NOT OTHERWISE SPECIFIED))
     Route: 042
     Dates: start: 20110310, end: 20110310
  3. LANSOPRAZOLE (LANSOPRAZOLE) [Suspect]
  4. AMOXICILLIN (AMOXICILLIN) [Suspect]
     Dosage: , [ONE DOSE GIVEN; CUMULATIVE DOSE TO FIRST RXN: 86937.5 MG] INTRAVENOUS (NOT OTHERWISE SPECIFIED))
     Route: 042
     Dates: start: 20110310, end: 20110310
  5. FLUCLOXACILINA (FLUCLOXACILIN) (NOT SPECIFIED) [Suspect]
     Dosage: , [FOUR DOSES GIVEN; CUMULATIVE DOSE 1ST RXN: 78000 MG] ORAL)
     Route: 048
     Dates: start: 20110329, end: 20110330
  6. LEVOFLOXACIN (LEVOFLOXACIN) [Suspect]
     Dosage: , [CUMULATIVE DOSE TO 1ST RXN: 56958.33 MG] INTRAVENOUS (NOT OTHERWISE SPECIFIED))
     Route: 042
     Dates: start: 20110311, end: 20110321
  7. MEROPENEM (MEROPENEM) [Suspect]
     Dosage: [CUMULATIVE DOSE TO 1ST RXN: 167.875 G])
     Dates: start: 20110312, end: 20110321
  8. TEICOPLANIN (TEICOPLANIN) [Suspect]
     Dosage: [1200 MG STAT, THEN 800 MG IN THE MORNING])
     Dates: start: 20110310
  9. LOPERAMIDE [Concomitant]
  10. HYOSCINE BUTYLBROMIDE [Concomitant]
  11. FLUOXETINE [Concomitant]
  12. PARACETAMOL [Concomitant]
  13. FUROSEMIDE [Concomitant]
  14. CASSIA SENNA [Concomitant]
  15. FERROUS SULPHATE /00023503/ (UNKNOWN) [Concomitant]

REACTIONS (1)
  - Clostridium difficile infection [None]
